FAERS Safety Report 12281994 (Version 4)
Quarter: 2017Q3

REPORT INFORMATION
  Report Type: Spontaneous
  Country: US (occurrence: US)
  Receive Date: 20160419
  Receipt Date: 20170907
  Transmission Date: 20171127
  Serious: Yes (Death, Life-Threatening, Hospitalization)
  Sender: FDA-Public Use
  Company Number: US-JNJFOC-20160415736

PATIENT
  Age: 48 Year
  Sex: Female
  Weight: 94.8 kg

DRUGS (1)
  1. INVOKANA [Suspect]
     Active Substance: CANAGLIFLOZIN
     Indication: DIABETES MELLITUS
     Route: 048
     Dates: start: 20141205, end: 201506

REACTIONS (8)
  - Acute respiratory failure [Recovered/Resolved]
  - Hypokalaemia [Unknown]
  - Septic shock [Fatal]
  - Cardiac failure congestive [Unknown]
  - Hypomagnesaemia [Unknown]
  - Acute kidney injury [Recovered/Resolved]
  - Cardiac arrest [Recovered/Resolved]
  - Cardiac arrest [Unknown]

NARRATIVE: CASE EVENT DATE: 201506
